FAERS Safety Report 5613802-0 (Version None)
Quarter: 2008Q1

REPORT INFORMATION
  Report Type: 
  Country: None (occurrence: None)
  Receive Date: 20080130
  Receipt Date: 20080121
  Transmission Date: 20080703
  Serious: Yes (Other)
  Sender: FDA-Public Use
  Company Number: 2008US000284

PATIENT
  Age: 59 Year
  Sex: Female

DRUGS (2)
  1. PROGRAF [Suspect]
     Indication: LIVER TRANSPLANT
  2. METHYLPREDNISOLONE [Concomitant]

REACTIONS (8)
  - CACHEXIA [None]
  - CHRONIC MYELOID LEUKAEMIA [None]
  - HAEMOGLOBIN DECREASED [None]
  - LETHARGY [None]
  - NIGHT SWEATS [None]
  - PLATELET COUNT DECREASED [None]
  - WEIGHT DECREASED [None]
  - WHITE BLOOD CELL COUNT INCREASED [None]
